FAERS Safety Report 6499139-9 (Version None)
Quarter: 2009Q4

REPORT INFORMATION
  Report Type: 
  Country: None (occurrence: None)
  Receive Date: 20091215
  Receipt Date: 20091202
  Transmission Date: 20100525
  Serious: Yes (Hospitalization)
  Sender: FDA-Public Use
  Company Number: JP-SANOFI-AVENTIS-2009SA006335

PATIENT
  Age: 58 Year
  Sex: Male

DRUGS (4)
  1. ELPLAT [Suspect]
     Indication: COLON CANCER METASTATIC
     Route: 041
     Dates: start: 20090928, end: 20090928
  2. AVASTIN [Suspect]
     Indication: COLON CANCER METASTATIC
     Route: 041
     Dates: start: 20090928, end: 20090928
  3. FLUOROURACIL [Suspect]
     Indication: COLON CANCER METASTATIC
     Route: 041
     Dates: start: 20090928, end: 20090930
  4. CALCIUM LEVOFOLINATE [Concomitant]
     Dates: start: 20090928, end: 20090928

REACTIONS (1)
  - COLONIC FISTULA [None]
